FAERS Safety Report 9634108 (Version 1)
Quarter: 2013Q4

REPORT INFORMATION
  Report Type: Report from Study
  Country: US (occurrence: US)
  Receive Date: 20131021
  Receipt Date: 20131021
  Transmission Date: 20140711
  Serious: Yes (Other)
  Sender: FDA-Public Use
  Company Number: US-ROCHE-1290828

PATIENT
  Sex: Female

DRUGS (3)
  1. RITUXAN [Suspect]
     Indication: LYMPHOMA
     Route: 042
  2. TYLENOL [Concomitant]
     Route: 048
  3. BENADRYL (UNITED STATES) [Concomitant]
     Route: 048

REACTIONS (1)
  - Pleural effusion [Unknown]
